FAERS Safety Report 10035960 (Version 1)
Quarter: 2014Q1

REPORT INFORMATION
  Report Type: Spontaneous
  Country: US (occurrence: US)
  Receive Date: 20140325
  Receipt Date: 20140325
  Transmission Date: 20141002
  Serious: Yes (Other)
  Sender: FDA-Public Use
  Company Number: US-PFIZER INC-2014081257

PATIENT
  Age: 57 Year
  Sex: Female
  Weight: 88.44 kg

DRUGS (3)
  1. LYRICA [Suspect]
     Indication: FIBROMYALGIA
     Dosage: 75 MG, 2X/DAY
     Dates: start: 20130816
  2. AMBIEN [Concomitant]
     Indication: SLEEP DISORDER
     Dosage: 10 MG, DAILY
  3. PERCOCET [Concomitant]
     Indication: PAIN
     Dosage: OXYCODONE 5 MG/ACETAMINOPHEN 325 MG, AS NEEDED

REACTIONS (1)
  - Arthropathy [Unknown]
